FAERS Safety Report 16174466 (Version 5)
Quarter: 2019Q4

REPORT INFORMATION
  Report Type: Report from Study
  Country: JP (occurrence: JP)
  Receive Date: 20190409
  Receipt Date: 20191223
  Transmission Date: 20200122
  Serious: Yes (Death, Other)
  Sender: FDA-Public Use
  Company Number: PHJP2019JP004139

PATIENT
  Age: 79 Year
  Sex: Female

DRUGS (2)
  1. TAFINLAR [Suspect]
     Active Substance: DABRAFENIB MESYLATE
     Indication: NON-SMALL CELL LUNG CANCER STAGE IV
     Dosage: 300 MG, UNK
     Route: 048
     Dates: start: 20190306, end: 20190312
  2. MEKINIST [Suspect]
     Active Substance: TRAMETINIB DIMETHYL SULFOXIDE
     Indication: NON-SMALL CELL LUNG CANCER STAGE IV
     Dosage: 2 MG, UNK
     Route: 048
     Dates: start: 20190306, end: 20190312

REACTIONS (3)
  - Respiratory disorder [Fatal]
  - Pneumocystis jirovecii pneumonia [Fatal]
  - Fatigue [Not Recovered/Not Resolved]

NARRATIVE: CASE EVENT DATE: 20190312
